FAERS Safety Report 8762473 (Version 1)
Quarter: 2012Q4

REPORT INFORMATION
  Report Type: 
  Country: NL (occurrence: NL)
  Receive Date: 20120830
  Receipt Date: 20120830
  Transmission Date: 20130627
  Serious: Yes (Other)
  Sender: FDA-Public Use
  Company Number: NL-ABBOTT-12P-114-0972353-00

PATIENT
  Weight: 2.4 kg

DRUGS (1)
  1. REMIFENTANYL [Suspect]
     Indication: MATERNAL EXPOSURE TIMING UNSPECIFIED
     Route: 064

REACTIONS (5)
  - Hypotonia [Recovered/Resolved]
  - Apnoea [Recovered/Resolved]
  - Bradycardia [Recovered/Resolved]
  - Foetal exposure during pregnancy [Unknown]
  - Respiratory depression [Recovered/Resolved]
